FAERS Safety Report 8181931-6 (Version None)
Quarter: 2012Q1

REPORT INFORMATION
  Report Type: 
  Country: None (occurrence: None)
  Receive Date: 20120302
  Receipt Date: 20120217
  Transmission Date: 20120608
  Serious: Yes (Other)
  Sender: FDA-Public Use
  Company Number: PHHY2011CA67004

PATIENT
  Sex: Male

DRUGS (2)
  1. SANDOSTATIN LAR [Suspect]
     Indication: CARCINOID TUMOUR
     Dosage: 30 MG, QMO
     Route: 030
     Dates: start: 20110617
  2. ASPIRIN [Concomitant]
     Dosage: 81 MG DAILY

REACTIONS (9)
  - HEART RATE IRREGULAR [None]
  - JAUNDICE [None]
  - INJECTION SITE PAIN [None]
  - CARDIAC VALVE DISEASE [None]
  - PNEUMONIA [None]
  - PRURITUS [None]
  - RENAL FAILURE [None]
  - DYSPHAGIA [None]
  - BLOOD PRESSURE INCREASED [None]
